FAERS Safety Report 9056033 (Version 1)
Quarter: 2013Q1

REPORT INFORMATION
  Report Type: Spontaneous
  Country: US (occurrence: US)
  Receive Date: 20130205
  Receipt Date: 20130205
  Transmission Date: 20140127
  Serious: Yes (Other)
  Sender: FDA-Public Use
  Company Number: US-JNJFOC-20130200715

PATIENT
  Age: 85 Year
  Sex: Female
  Weight: 68.04 kg

DRUGS (3)
  1. TYLENOL ARTHRITIS PAIN ER [Suspect]
     Route: 048
  2. TYLENOL ARTHRITIS PAIN ER [Suspect]
     Indication: PAIN
     Dosage: 650MG/CAPLET
     Route: 048
     Dates: start: 20091125
  3. LISINOPRIL [Concomitant]
     Indication: HYPERTENSION
     Route: 065

REACTIONS (7)
  - Liver disorder [Unknown]
  - Haematochezia [Unknown]
  - Abdominal pain [Unknown]
  - Chromaturia [Unknown]
  - Urinary tract disorder [Unknown]
  - Abnormal faeces [Unknown]
  - Pain [None]
